FAERS Safety Report 6813587-6 (Version None)
Quarter: 2010Q3

REPORT INFORMATION
  Report Type: 
  Country: None (occurrence: None)
  Receive Date: 20100701
  Receipt Date: 20100623
  Transmission Date: 20110219
  Serious: Yes (Hospitalization)
  Sender: FDA-Public Use
  Company Number: US-WYE-H15096910

PATIENT
  Sex: Male
  Weight: 84 kg

DRUGS (18)
  1. TACROLIMUS [Suspect]
     Indication: PROPHYLAXIS AGAINST TRANSPLANT REJECTION
     Route: 048
     Dates: start: 20100214, end: 20100331
  2. PREDNISONE TAB [Concomitant]
     Indication: PROPHYLAXIS AGAINST TRANSPLANT REJECTION
     Dosage: DOSE UNKNOWN
     Route: 065
     Dates: start: 20100214
  3. MYFORTIC [Concomitant]
     Indication: IMMUNOSUPPRESSANT DRUG THERAPY
     Dosage: DOSE UNKNOWN
     Route: 065
     Dates: start: 20100218
  4. ACETYLSALICYLIC ACID [Concomitant]
     Indication: CARDIOVASCULAR EVENT PROPHYLAXIS
     Dosage: DOSE UNKNOWN
     Route: 065
  5. CALCIUM CARBONATE [Concomitant]
     Indication: OSTEOPOROSIS
     Dosage: DOSE UNKNOWN
     Route: 065
     Dates: start: 20100214
  6. ARANESP [Concomitant]
     Indication: ANAEMIA
     Dosage: DOSE UNKNOWN
     Route: 065
     Dates: start: 20100214
  7. FLONASE [Concomitant]
     Indication: HYPERSENSITIVITY
     Dosage: DOSE UNKNOWN
     Route: 065
     Dates: start: 20100214
  8. POTASSIUM PHOSPHATE MONOBASIC/SODIUM PHOSPHATE DIBASIC/SODIUM PHOSPHAT [Concomitant]
     Indication: HYPOPHOSPHATAEMIA
     Dosage: DOSE UNKNOWN
     Route: 065
     Dates: start: 20100214
  9. GUAR GUM [Concomitant]
     Indication: CONSTIPATION
     Dosage: DOSE UNKNOWN
     Route: 065
     Dates: start: 20100214
  10. MAGNESIUM OXIDE [Concomitant]
     Indication: HYPOMAGNESAEMIA
     Dosage: DOSE UNKNOWN
     Route: 065
     Dates: start: 20100214
  11. LOPERAMIDE [Concomitant]
     Indication: DIARRHOEA
     Dosage: DOSE UNKNOWN
     Route: 065
     Dates: start: 20100315
  12. LOPERAMIDE [Concomitant]
     Indication: PROPHYLAXIS
  13. SEPTRA [Concomitant]
     Indication: ANTIBIOTIC PROPHYLAXIS
     Dosage: DOSE UNKNOWN
     Route: 065
     Dates: start: 20100218
  14. MULTI-VITAMINS [Concomitant]
     Indication: MEDICAL DIET
     Dosage: DOSE UNKNOWN
     Route: 065
     Dates: start: 20100214
  15. LASIX [Concomitant]
     Indication: OEDEMA
     Dosage: DOSE UNKNOWN
     Route: 065
     Dates: start: 20100415
  16. METOPROLOL TARTRATE [Concomitant]
     Indication: HYPERTENSION
     Dosage: DOSE UNKNOWN
     Route: 065
     Dates: start: 20100415
  17. FLOMAX [Concomitant]
     Indication: URINARY RETENTION
     Dosage: DOSE UNKNOWN
     Route: 065
     Dates: start: 20100310
  18. CYCLOSPORINE [Suspect]
     Indication: IMMUNOSUPPRESSANT DRUG THERAPY
     Route: 048
     Dates: start: 20100331

REACTIONS (2)
  - PYELONEPHRITIS [None]
  - URETERIC OBSTRUCTION [None]
